FAERS Safety Report 15353267 (Version 2)
Quarter: 2018Q4

REPORT INFORMATION
  Report Type: Spontaneous
  Country: JP (occurrence: JP)
  Receive Date: 20180905
  Receipt Date: 20181001
  Transmission Date: 20190204
  Serious: No
  Sender: FDA-Public Use
  Company Number: JP-GILEAD-2018-0358907

PATIENT
  Age: 53 Year
  Sex: Female

DRUGS (7)
  1. URSODEOXYCHOLIC ACID [Concomitant]
     Active Substance: URSODIOL
     Dosage: UNK
  2. ENTECAVIR. [Concomitant]
     Active Substance: ENTECAVIR
     Dosage: UNK
  3. TENOFOVIR DISOPROXIL FUMARATE. [Suspect]
     Active Substance: TENOFOVIR DISOPROXIL FUMARATE
     Indication: HEPATITIS B
     Dosage: 300 MG, QD
     Route: 048
     Dates: start: 20180424
  4. ENTECAVIR. [Concomitant]
     Active Substance: ENTECAVIR
     Dosage: UNK
     Dates: end: 201804
  5. URSODEOXYCHOLIC ACID [Concomitant]
     Active Substance: URSODIOL
     Dosage: 200 MG, TID
     Dates: start: 20180327
  6. ENTECAVIR. [Concomitant]
     Active Substance: ENTECAVIR
     Dosage: UNK
  7. URSODEOXYCHOLIC ACID [Concomitant]
     Active Substance: URSODIOL
     Dosage: 200 MG, TID
     Dates: start: 20180327

REACTIONS (2)
  - Glomerular filtration rate decreased [Recovering/Resolving]
  - Blood creatine phosphokinase increased [Not Recovered/Not Resolved]

NARRATIVE: CASE EVENT DATE: 20180814
